FAERS Safety Report 5735068-3 (Version None)
Quarter: 2008Q2

REPORT INFORMATION
  Report Type: 
  Country: None (occurrence: None)
  Receive Date: 20080512
  Receipt Date: 20080505
  Transmission Date: 20081010
  Serious: Yes (Other)
  Sender: FDA-Public Use
  Company Number: PHHY2008PT07214

PATIENT
  Age: 38 Year
  Sex: Female

DRUGS (1)
  1. ZOMETA [Suspect]
     Indication: GAUCHER'S DISEASE
     Route: 042

REACTIONS (2)
  - OSTEONECROSIS [None]
  - SURGERY [None]
